FAERS Safety Report 26208433 (Version 1)
Quarter: 2025Q4

REPORT INFORMATION
  Report Type: Spontaneous
  Country: US (occurrence: None)
  Receive Date: 20251227
  Receipt Date: 20251227
  Transmission Date: 20260117
  Serious: Yes (Disabling)
  Sender: FDA-CTU
  Company Number: None

PATIENT
  Age: 56 Year
  Sex: Female
  Weight: 141.75 kg

DRUGS (3)
  1. LITHIUM [Suspect]
     Active Substance: LITHIUM
     Indication: Bipolar disorder
     Dosage: FREQUENCY : DAILY;
     Route: 048
     Dates: start: 20250701, end: 20250705
  2. BUPROPION [Suspect]
     Active Substance: BUPROPION
  3. DIAZEPAM [Suspect]
     Active Substance: DIAZEPAM

REACTIONS (5)
  - Heavy menstrual bleeding [None]
  - Therapy cessation [None]
  - Postmenopausal haemorrhage [None]
  - Product use issue [None]
  - Circumstance or information capable of leading to medication error [None]

NARRATIVE: CASE EVENT DATE: 20250701
